FAERS Safety Report 4666136-5 (Version None)
Quarter: 2005Q2

REPORT INFORMATION
  Report Type: 
  Country: None (occurrence: None)
  Receive Date: 20050519
  Receipt Date: 20050512
  Transmission Date: 20051028
  Serious: Yes (Hospitalization)
  Sender: FDA-Public Use
  Company Number: US-MERCK-0505USA01594

PATIENT
  Age: 35 Year
  Sex: Male

DRUGS (3)
  1. PROPECIA [Suspect]
     Indication: ALOPECIA
     Route: 048
     Dates: start: 20000101
  2. PAXIL [Concomitant]
     Route: 065
  3. CARDIZEM [Concomitant]
     Route: 065

REACTIONS (2)
  - CHEST PAIN [None]
  - THERAPY NON-RESPONDER [None]
